FAERS Safety Report 5827829-7 (Version None)
Quarter: 2008Q3

REPORT INFORMATION
  Report Type: 
  Country: None (occurrence: None)
  Receive Date: 20080730
  Receipt Date: 20080721
  Transmission Date: 20090109
  Serious: Yes (Hospitalization)
  Sender: FDA-Public Use
  Company Number: FR-PFIZER INC-2008062233

PATIENT
  Sex: Male

DRUGS (1)
  1. CHANTIX [Suspect]
     Route: 048
     Dates: start: 20071001, end: 20071101

REACTIONS (2)
  - PNEUMONIA ASPIRATION [None]
  - SUICIDE ATTEMPT [None]
